FAERS Safety Report 21318748 (Version 2)
Quarter: 2022Q3

REPORT INFORMATION
  Report Type: Spontaneous
  Country: US (occurrence: US)
  Receive Date: 20220911
  Receipt Date: 20220930
  Transmission Date: 20221026
  Serious: No
  Sender: FDA-Public Use
  Company Number: US-SA-SAC20220830000257

PATIENT
  Sex: Female

DRUGS (14)
  1. DUPIXENT [Suspect]
     Active Substance: DUPILUMAB
     Indication: Dermatitis atopic
     Dosage: 300 MG, QOW
     Route: 058
     Dates: start: 20220715
  2. DUPIXENT [Suspect]
     Active Substance: DUPILUMAB
     Dosage: 300 MG, QOW
     Route: 058
     Dates: start: 20220729
  3. BENADRYL [Concomitant]
     Active Substance: DIPHENHYDRAMINE HYDROCHLORIDE
  4. GABAPENTIN [Concomitant]
     Active Substance: GABAPENTIN
  5. MELATONIN [Concomitant]
     Active Substance: MELATONIN
  6. POTASSIUM [Concomitant]
     Active Substance: POTASSIUM
  7. PRAMIPEXOLE [Concomitant]
     Active Substance: PRAMIPEXOLE
  8. ZINC [ZINC LACTATE] [Concomitant]
     Dosage: 2000,ZINC
  9. BETAMETHASONE [Concomitant]
     Active Substance: BETAMETHASONE
  10. LEVOTHYROXINE [Concomitant]
     Active Substance: LEVOTHYROXINE
  11. ASCORBIC ACID\RUTIN [Concomitant]
     Active Substance: ASCORBIC ACID\RUTIN
  12. VITAMIN D NOS [Concomitant]
     Active Substance: VITAMIN D NOS
  13. QUERCETIN [Concomitant]
     Active Substance: QUERCETIN
  14. VITAMINS NOS [Concomitant]
     Active Substance: VITAMINS

REACTIONS (11)
  - Skin fissures [Not Recovered/Not Resolved]
  - Dry skin [Not Recovered/Not Resolved]
  - Skin haemorrhage [Not Recovered/Not Resolved]
  - Skin weeping [Not Recovered/Not Resolved]
  - Sleep disorder [Not Recovered/Not Resolved]
  - Urticaria [Recovered/Resolved]
  - Skin exfoliation [Not Recovered/Not Resolved]
  - Pruritus [Not Recovered/Not Resolved]
  - Eczema [Not Recovered/Not Resolved]
  - Drug ineffective [Unknown]
  - Incorrect dose administered [Unknown]
